FAERS Safety Report 9691207 (Version 1)
Quarter: 2013Q4

REPORT INFORMATION
  Report Type: Spontaneous
  Country: US (occurrence: US)
  Receive Date: 20131115
  Receipt Date: 20131115
  Transmission Date: 20140711
  Serious: Yes (Hospitalization, Other)
  Sender: FDA-Public Use
  Company Number: US-GILEAD-2013-0087731

PATIENT
  Age: 33 Year
  Sex: Female

DRUGS (7)
  1. LETAIRIS [Suspect]
     Indication: PULMONARY HYPERTENSION
     Dosage: 10 MG, QD
     Dates: start: 20130124
  2. ADVAIR HFA [Concomitant]
  3. ALBUTEROL                          /00139501/ [Concomitant]
  4. FUROSEMIDE [Concomitant]
  5. ASPIRIN [Concomitant]
  6. NOVOLOG [Concomitant]
  7. LANTUS [Concomitant]

REACTIONS (1)
  - Pneumonia [Recovered/Resolved]
